APPROVED DRUG PRODUCT: TRILEPTAL
Active Ingredient: OXCARBAZEPINE
Strength: 300MG/5ML
Dosage Form/Route: SUSPENSION;ORAL
Application: N021285 | Product #001 | TE Code: AB
Applicant: NOVARTIS PHARMACEUTICALS CORP
Approved: May 25, 2001 | RLD: Yes | RS: Yes | Type: RX